FAERS Safety Report 4954824-2 (Version None)
Quarter: 2006Q1

REPORT INFORMATION
  Report Type: 
  Country: None (occurrence: None)
  Receive Date: 20060322
  Receipt Date: 20060302
  Transmission Date: 20060701
  Serious: Yes (Hospitalization, Other)
  Sender: FDA-Public Use
  Company Number: GB200603000740

PATIENT
  Age: 59 Year
  Sex: Male

DRUGS (4)
  1. HUMALOG MIX 75/25 [Suspect]
     Indication: DIABETES MELLITUS
     Dosage: SEE IMAGE
     Dates: end: 20030201
  2. HUMALOG MIX 75/25 [Suspect]
     Indication: DIABETES MELLITUS
     Dosage: SEE IMAGE
     Dates: start: 20021111
  3. HUMALOG [Suspect]
     Indication: DIABETES MELLITUS
     Dosage: SEE IMAGE, OTHER
     Route: 050
     Dates: start: 20030201
  4. INSULIN (INSULIN) [Concomitant]

REACTIONS (7)
  - ANGINA PECTORIS [None]
  - CARDIAC DISORDER [None]
  - COUGH [None]
  - DIFFICULTY IN WALKING [None]
  - MYOCARDIAL INFARCTION [None]
  - PERIARTHRITIS [None]
  - PLEURISY [None]
